FAERS Safety Report 9347153 (Version 1)
Quarter: 2013Q2

REPORT INFORMATION
  Report Type: Spontaneous
  Country: US (occurrence: US)
  Receive Date: 20130613
  Receipt Date: 20130613
  Transmission Date: 20140414
  Serious: No
  Sender: FDA-Public Use
  Company Number: US-009507513-1306USA003553

PATIENT
  Sex: Female

DRUGS (2)
  1. NASONEX [Suspect]
     Indication: SEASONAL ALLERGY
     Dosage: 1 SPRAY IN ECH NOSTRIL, AT NIGHT
     Route: 045
     Dates: start: 201304, end: 201305
  2. CRESTOR [Concomitant]

REACTIONS (4)
  - Throat irritation [Recovered/Resolved]
  - Tonsillar inflammation [Recovered/Resolved]
  - Underdose [Unknown]
  - Inappropriate schedule of drug administration [Unknown]
